FAERS Safety Report 18747791 (Version 1)
Quarter: 2021Q1

REPORT INFORMATION
  Report Type: Spontaneous
  Country: DE (occurrence: FR)
  Receive Date: 20210115
  Receipt Date: 20210115
  Transmission Date: 20210419
  Serious: Yes (Other)
  Sender: FDA-Public Use
  Company Number: FR-ELI_LILLY_AND_COMPANY-FR202101003492

PATIENT
  Age: 77 Year
  Sex: Female

DRUGS (3)
  1. ERBITUX [Suspect]
     Active Substance: CETUXIMAB
     Indication: ADENOCARCINOMA OF COLON
     Dosage: 250 MG/M2, UNK
     Route: 042
     Dates: start: 20200812
  2. METHYLPREDNISOLONE. [Suspect]
     Active Substance: METHYLPREDNISOLONE
     Indication: ADENOCARCINOMA OF COLON
     Dosage: 120 MG, WEEKLY (1/W)
     Route: 042
     Dates: start: 20200812
  3. BRAFTOVI [Suspect]
     Active Substance: ENCORAFENIB
     Indication: ADENOCARCINOMA OF COLON
     Dosage: 300 MG, DAILY
     Route: 048
     Dates: start: 20200812

REACTIONS (1)
  - Diabetic metabolic decompensation [Recovered/Resolved with Sequelae]

NARRATIVE: CASE EVENT DATE: 20200826
